FAERS Safety Report 22084268 (Version 1)
Quarter: 2023Q1

REPORT INFORMATION
  Report Type: Spontaneous
  Country: US (occurrence: US)
  Receive Date: 20230310
  Receipt Date: 20230310
  Transmission Date: 20230418
  Serious: No
  Sender: FDA-Public Use
  Company Number: US-HORIZON THERAPEUTICS-HZN-2022-001539

PATIENT

DRUGS (2)
  1. PENNSAID [Suspect]
     Active Substance: DICLOFENAC SODIUM
     Indication: Osteoarthritis
     Dosage: UNK
     Route: 061
  2. PENNSAID [Suspect]
     Active Substance: DICLOFENAC SODIUM
     Indication: Carpal tunnel syndrome

REACTIONS (2)
  - Device delivery system issue [Unknown]
  - Off label use [Unknown]
